FAERS Safety Report 5472832-2 (Version None)
Quarter: 2007Q4

REPORT INFORMATION
  Report Type: 
  Country: None (occurrence: None)
  Receive Date: 20071001
  Receipt Date: 20061114
  Transmission Date: 20080405
  Serious: No
  Sender: FDA-Public Use
  Company Number: US-ASTRAZENECA-2006UW24452

PATIENT
  Sex: Female

DRUGS (6)
  1. ARIMIDEX [Suspect]
     Indication: BREAST CANCER
     Route: 048
     Dates: start: 20060101
  2. DOCETAXEL [Concomitant]
     Dates: start: 20050801, end: 20051101
  3. DOXORUBICIN HCL [Concomitant]
     Dates: start: 20050801, end: 20051101
  4. CYCLOPHOSPHAMIDE [Concomitant]
     Dates: start: 20050801, end: 20051101
  5. NEULASTA [Concomitant]
  6. RADIATION THERAPY [Concomitant]
     Dates: start: 20051201, end: 20060201

REACTIONS (5)
  - CHEILITIS [None]
  - DYSGEUSIA [None]
  - RASH [None]
  - STOMATITIS [None]
  - URTICARIA [None]
